FAERS Safety Report 18336802 (Version 2)
Quarter: 2020Q4

REPORT INFORMATION
  Report Type: Report from Study
  Country: MX (occurrence: MX)
  Receive Date: 20201001
  Receipt Date: 20201110
  Transmission Date: 20210113
  Serious: Yes (Death)
  Sender: FDA-Public Use
  Company Number: NVSC2020MX267105

PATIENT
  Sex: Male

DRUGS (1)
  1. REVOLADE [Suspect]
     Active Substance: ELTROMBOPAG
     Indication: LEUKAEMIA
     Dosage: 50 MG, QD
     Route: 048
     Dates: start: 20200328, end: 20200901

REACTIONS (2)
  - Product use in unapproved indication [Unknown]
  - Death [Fatal]
